FAERS Safety Report 13298954 (Version 1)
Quarter: 2017Q1

REPORT INFORMATION
  Report Type: Spontaneous
  Country: FR (occurrence: FR)
  Receive Date: 20170306
  Receipt Date: 20170306
  Transmission Date: 20170428
  Serious: Yes (Hospitalization)
  Sender: FDA-Public Use
  Company Number: FR-009507513-1702FRA011591

PATIENT
  Age: 50 Year
  Sex: Male

DRUGS (1)
  1. ZEPATIER [Suspect]
     Active Substance: ELBASVIR\GRAZOPREVIR
     Dosage: 1 TABLET, QD
     Route: 048

REACTIONS (3)
  - Cerebral disorder [Unknown]
  - Confusional state [Unknown]
  - Visual impairment [Unknown]
